FAERS Safety Report 10076925 (Version 1)
Quarter: 2014Q2

REPORT INFORMATION
  Report Type: Spontaneous
  Country: GB (occurrence: GB)
  Receive Date: 20140414
  Receipt Date: 20140414
  Transmission Date: 20141212
  Serious: Yes (Other)
  Sender: FDA-Public Use
  Company Number: GB-GLAXOSMITHKLINE-A1069311A

PATIENT
  Age: 53 Year
  Sex: Female

DRUGS (1)
  1. ACITRETIN [Suspect]
     Indication: PSORIASIS
     Dosage: 10MG ALTERNATE DAYS
     Route: 048
     Dates: start: 20131111, end: 20131209

REACTIONS (2)
  - Cholecystitis acute [Recovered/Resolved]
  - Cholecystectomy [Recovered/Resolved]
